FAERS Safety Report 5411634-X (Version None)
Quarter: 2007Q3

REPORT INFORMATION
  Report Type: 
  Country: None (occurrence: None)
  Receive Date: 20070810
  Receipt Date: 20070731
  Transmission Date: 20080115
  Serious: Yes (Other)
  Sender: FDA-Public Use
  Company Number: FR-PFIZER INC-2007064268

PATIENT
  Age: 55 Year
  Sex: Male

DRUGS (5)
  1. TAHOR [Suspect]
  2. PLAVIX [Concomitant]
  3. INIPOMP [Concomitant]
  4. ATACAND [Concomitant]
  5. GLUCOPHAGE [Concomitant]

REACTIONS (3)
  - ABDOMINAL PAIN UPPER [None]
  - BACK PAIN [None]
  - PANCREATIC DISORDER [None]
